FAERS Safety Report 17097477 (Version 1)
Quarter: 2019Q4

REPORT INFORMATION
  Report Type: Spontaneous
  Country: US (occurrence: US)
  Receive Date: 20191202
  Receipt Date: 20191202
  Transmission Date: 20200122
  Serious: No
  Sender: FDA-Public Use
  Company Number: US-MYLANLABS-2019M1109923

PATIENT
  Sex: Female

DRUGS (1)
  1. ESTRADIOL TRANSDERMAL SYSTEM [Suspect]
     Active Substance: ESTRADIOL
     Indication: MENOPAUSE
     Dosage: UNK UNK, BIWEEKLY
     Dates: start: 201909

REACTIONS (8)
  - Night sweats [Recovered/Resolved]
  - Drug level decreased [Recovered/Resolved]
  - Product dose omission [Recovered/Resolved]
  - Poor quality sleep [Recovered/Resolved]
  - Weight increased [Recovered/Resolved]
  - Drug ineffective [Recovered/Resolved]
  - Hot flush [Recovered/Resolved]
  - Dry throat [Recovered/Resolved]
